FAERS Safety Report 17384217 (Version 1)
Quarter: 2020Q1

REPORT INFORMATION
  Report Type: Spontaneous
  Country: US (occurrence: US)
  Receive Date: 20200206
  Receipt Date: 20200206
  Transmission Date: 20200409
  Serious: No
  Sender: FDA-Public Use
  Company Number: US-ABBVIE-19K-163-2858223-00

PATIENT
  Age: 64 Year
  Sex: Female
  Weight: 69.01 kg

DRUGS (9)
  1. SYNTHROID [Concomitant]
     Active Substance: LEVOTHYROXINE SODIUM
     Indication: HYPOTHYROIDISM
  2. BIOTIN [Concomitant]
     Active Substance: BIOTIN
     Indication: PRODUCT USED FOR UNKNOWN INDICATION
  3. OMEPRAZOLE. [Concomitant]
     Active Substance: OMEPRAZOLE
     Indication: GASTROOESOPHAGEAL REFLUX DISEASE
  4. PRENATAL VITAMINS [Concomitant]
     Active Substance: VITAMINS
     Indication: PRODUCT USED FOR UNKNOWN INDICATION
  5. METHOTREXATE. [Suspect]
     Active Substance: METHOTREXATE
     Indication: PSORIATIC ARTHROPATHY
     Route: 048
     Dates: start: 2018
  6. VITAMIN D [Concomitant]
     Active Substance: VITAMIN D NOS
     Indication: PRODUCT USED FOR UNKNOWN INDICATION
  7. FOLIC ACID. [Concomitant]
     Active Substance: FOLIC ACID
     Indication: PRODUCT USED FOR UNKNOWN INDICATION
  8. LOSARTAN. [Concomitant]
     Active Substance: LOSARTAN
     Indication: HYPERTENSION
  9. HUMIRA [Suspect]
     Active Substance: ADALIMUMAB
     Indication: PSORIATIC ARTHROPATHY
     Route: 058
     Dates: start: 201905

REACTIONS (25)
  - Joint swelling [Recovered/Resolved]
  - Dysphonia [Recovering/Resolving]
  - Pain [Recovered/Resolved]
  - Grip strength decreased [Recovered/Resolved]
  - Incorrect dose administered [Recovered/Resolved]
  - Fear [Recovering/Resolving]
  - Dysgeusia [Recovered/Resolved]
  - Irritability [Recovering/Resolving]
  - Mood altered [Recovering/Resolving]
  - Epistaxis [Recovered/Resolved]
  - Claustrophobia [Recovering/Resolving]
  - Arthralgia [Recovered/Resolved]
  - Sinusitis [Not Recovered/Not Resolved]
  - Insomnia [Recovering/Resolving]
  - Pain in extremity [Recovered/Resolved]
  - Nervousness [Recovering/Resolving]
  - Ear pruritus [Recovering/Resolving]
  - Wrong technique in product usage process [Recovered/Resolved]
  - Nasal crusting [Recovering/Resolving]
  - Anxiety [Recovering/Resolving]
  - Musculoskeletal pain [Recovered/Resolved]
  - Somnolence [Recovering/Resolving]
  - Injection site haemorrhage [Recovered/Resolved]
  - Drug ineffective [Not Recovered/Not Resolved]
  - Pain in extremity [Recovering/Resolving]

NARRATIVE: CASE EVENT DATE: 2019
